FAERS Safety Report 21516843 (Version 2)
Quarter: 2023Q1

REPORT INFORMATION
  Report Type: Other
  Country: US (occurrence: None)
  Receive Date: 20221028
  Receipt Date: 20230302
  Transmission Date: 20230418
  Serious: No
  Sender: FDA-Public Use
  Company Number: US-ROCHE-3204160

PATIENT
  Age: 60 Year
  Sex: Male
  Weight: 100.33 kg

DRUGS (12)
  1. OCREVUS [Suspect]
     Active Substance: OCRELIZUMAB
     Indication: Primary progressive multiple sclerosis
     Dosage: DATE OF TREATMENT ; 29-APR-2020,8-APR-2020,08-MAR-2022,30-AUG-2021,30- DEC-2020, 300 MG IV ON D1 AND
     Route: 042
     Dates: start: 2020
  2. CLARITIN [Concomitant]
     Active Substance: LORATADINE
  3. MUCINEX [Concomitant]
     Active Substance: GUAIFENESIN
  4. BACLOFEN [Concomitant]
     Active Substance: BACLOFEN
  5. CELEBREX [Concomitant]
     Active Substance: CELECOXIB
  6. TRAZODONE [Concomitant]
     Active Substance: TRAZODONE HYDROCHLORIDE
  7. ESCITALOPRAM OXALATE [Concomitant]
     Active Substance: ESCITALOPRAM OXALATE
  8. LISINOPRIL [Concomitant]
     Active Substance: LISINOPRIL
  9. PANTOPRAZOLE SODIUM [Concomitant]
     Active Substance: PANTOPRAZOLE SODIUM
  10. SPRIX [Concomitant]
     Active Substance: KETOROLAC TROMETHAMINE
  11. ERGOCALCIFEROL [Concomitant]
     Active Substance: ERGOCALCIFEROL
  12. ADDERALL [Concomitant]
     Active Substance: AMPHETAMINE ASPARTATE\AMPHETAMINE SULFATE\DEXTROAMPHETAMINE SACCHARATE\DEXTROAMPHETAMINE SULFATE

REACTIONS (5)
  - COVID-19 [Recovered/Resolved]
  - Vomiting [Recovered/Resolved]
  - Dyspnoea [Recovered/Resolved]
  - Anxiety [Recovered/Resolved]
  - Off label use [Unknown]

NARRATIVE: CASE EVENT DATE: 20200101
